FAERS Safety Report 25808850 (Version 1)
Quarter: 2025Q3

REPORT INFORMATION
  Report Type: Spontaneous
  Country: EU (occurrence: EU)
  Receive Date: 20250916
  Receipt Date: 20250916
  Transmission Date: 20251021
  Serious: Yes (Death, Other)
  Sender: BAUSCH AND LOMB
  Company Number: EU-JNJFOC-20231073294

PATIENT
  Age: 77 Year
  Sex: Female

DRUGS (8)
  1. DEXAMETHASONE [Suspect]
     Active Substance: DEXAMETHASONE
     Indication: Plasma cell myeloma
     Dosage: 2 WEEK(S)/CYCLE
     Route: 065
  2. DEXAMETHASONE [Suspect]
     Active Substance: DEXAMETHASONE
     Route: 065
     Dates: end: 20220519
  3. DEXAMETHASONE [Suspect]
     Active Substance: DEXAMETHASONE
     Route: 065
  4. CYCLOPHOSPHAMIDE [Suspect]
     Active Substance: CYCLOPHOSPHAMIDE
     Indication: Plasma cell myeloma
     Dosage: 3 WEEK(S)/CYCLE
     Route: 065
  5. VELCADE [Suspect]
     Active Substance: BORTEZOMIB
     Indication: Plasma cell myeloma
     Dosage: 2 WEEK(S)/CYCLE
     Route: 065
  6. VELCADE [Suspect]
     Active Substance: BORTEZOMIB
     Route: 065
     Dates: end: 20220519
  7. LENALIDOMIDE [Suspect]
     Active Substance: LENALIDOMIDE
     Indication: Plasma cell myeloma
     Route: 065
     Dates: end: 20220519
  8. LENALIDOMIDE [Suspect]
     Active Substance: LENALIDOMIDE
     Route: 065

REACTIONS (3)
  - Plasma cell myeloma [Fatal]
  - Acute kidney injury [Unknown]
  - Off label use [Unknown]

NARRATIVE: CASE EVENT DATE: 20220606
